FAERS Safety Report 9850498 (Version 1)
Quarter: 2013Q4

REPORT INFORMATION
  Report Type: Spontaneous
  Country: US (occurrence: None)
  Receive Date: 20131226
  Receipt Date: 20131226
  Transmission Date: 20140711
  Serious: Yes (Other)
  Sender: FDA-Public Use
  Company Number: PHEH2013US002055

PATIENT
  Age: 46 Year
  Sex: Male

DRUGS (4)
  1. DIOVAN [Suspect]
     Indication: HYPERTENSION
     Route: 048
  2. DIOVAN HCT (VALSARTAN, HYDROCHLOROTHIAZIDE) UNKNOWN [Suspect]
  3. CYMBALTA (DULOXETINE HYDROCHLORIDE) [Concomitant]
  4. ALPRAZOLAM (ALPRAZOLAM) [Concomitant]

REACTIONS (4)
  - Fatigue [None]
  - Blood potassium decreased [None]
  - Musculoskeletal discomfort [None]
  - Blood pressure increased [None]
